FAERS Safety Report 8138645-8 (Version None)
Quarter: 2012Q1

REPORT INFORMATION
  Report Type: 
  Country: None (occurrence: None)
  Receive Date: 20120213
  Receipt Date: 20120203
  Transmission Date: 20120608
  Serious: Yes (Other)
  Sender: FDA-Public Use
  Company Number: 2012MA001743

PATIENT
  Age: 96 Year
  Sex: Female

DRUGS (7)
  1. CALCIUM CARBONATE [Concomitant]
  2. RANITIDINE [Suspect]
     Indication: GASTRIC DISORDER
     Dosage: 300 MG; PO
     Route: 048
     Dates: start: 20120102, end: 20120118
  3. ACETAMINOPHEN [Concomitant]
  4. ENOXAPARIN [Concomitant]
  5. FONDAPARINUX SODIUM [Concomitant]
  6. ACETYLSALICYLIC ACID SRT [Concomitant]
  7. CLOPIDOGREL [Concomitant]

REACTIONS (1)
  - NEUTROPENIA [None]
